FAERS Safety Report 12923801 (Version 2)
Quarter: 2016Q4

REPORT INFORMATION
  Report Type: Spontaneous
  Country: US (occurrence: US)
  Receive Date: 20161109
  Receipt Date: 20161116
  Transmission Date: 20170207
  Serious: No
  Sender: FDA-Public Use
  Company Number: US-BEH-2016075108

PATIENT
  Sex: Male

DRUGS (1)
  1. HIZENTRA [Suspect]
     Active Substance: HUMAN IMMUNOGLOBULIN G
     Indication: SELECTIVE IGG SUBCLASS DEFICIENCY
     Dosage: 3 G, QW
     Route: 058

REACTIONS (3)
  - Infusion site extravasation [Recovered/Resolved]
  - Infusion site urticaria [Recovered/Resolved]
  - Abdominal pain [Recovered/Resolved]
